FAERS Safety Report 6359337-1 (Version None)
Quarter: 2009Q3

REPORT INFORMATION
  Report Type: 
  Country: None (occurrence: None)
  Receive Date: 20090917
  Receipt Date: 20090914
  Transmission Date: 20100115
  Serious: Yes (Hospitalization)
  Sender: FDA-Public Use
  Company Number: US-BRISTOL-MYERS SQUIBB COMPANY-14779334

PATIENT
  Age: 54 Year
  Sex: Female
  Weight: 87 kg

DRUGS (4)
  1. ERBITUX [Suspect]
     Indication: OESOPHAGEAL SQUAMOUS CELL CARCINOMA
     Dosage: TOTAL NUMBER OF COURSE:5
     Dates: start: 20090804, end: 20090901
  2. CISPLATIN [Suspect]
     Indication: OESOPHAGEAL SQUAMOUS CELL CARCINOMA
     Dosage: TOTAL NUMBER OF COURSE:5
     Dates: start: 20090804, end: 20090901
  3. TAXOL [Suspect]
     Indication: OESOPHAGEAL SQUAMOUS CELL CARCINOMA
     Dosage: TOTAL NUMBER OF COURSE:5
     Dates: start: 20090804, end: 20090901
  4. RADIATION THERAPY [Suspect]
     Indication: OESOPHAGEAL SQUAMOUS CELL CARCINOMA
     Dates: start: 20090804

REACTIONS (1)
  - RADIATION SKIN INJURY [None]
